FAERS Safety Report 13625739 (Version 1)
Quarter: 2017Q2

REPORT INFORMATION
  Report Type: Spontaneous
  Country: US (occurrence: US)
  Receive Date: 20170607
  Receipt Date: 20170607
  Transmission Date: 20170830
  Serious: No
  Sender: FDA-Public Use
  Company Number: None

PATIENT
  Age: 57 Year
  Sex: Male
  Weight: 100.83 kg

DRUGS (1)
  1. SPIRONOLACTONE. [Suspect]
     Active Substance: SPIRONOLACTONE
     Indication: PRODUCT USED FOR UNKNOWN INDICATION
     Route: 048
     Dates: end: 20170503

REACTIONS (4)
  - Acute kidney injury [None]
  - Rectal haemorrhage [None]
  - Hyperkalaemia [None]
  - Abdominal pain [None]

NARRATIVE: CASE EVENT DATE: 20170503
